FAERS Safety Report 23031704 (Version 2)
Quarter: 2025Q2

REPORT INFORMATION
  Report Type: Spontaneous
  Country: SE (occurrence: SE)
  Receive Date: 20231005
  Receipt Date: 20250627
  Transmission Date: 20250717
  Serious: Yes (Hospitalization, Other)
  Sender: AUROBINDO
  Company Number: SE-SEMPA-2023-014095

PATIENT
  Age: 36 Year
  Sex: Male

DRUGS (4)
  1. LOSARTAN [Suspect]
     Active Substance: LOSARTAN
     Indication: Product used for unknown indication
     Route: 065
     Dates: start: 20230909, end: 20230909
  2. AMITRIPTYLINE [Suspect]
     Active Substance: AMITRIPTYLINE
     Indication: Product used for unknown indication
     Route: 065
     Dates: start: 20230909, end: 20230909
  3. PROPIOMAZINE [Suspect]
     Active Substance: PROPIOMAZINE
     Indication: Product used for unknown indication
     Route: 065
     Dates: start: 20230909, end: 20230909
  4. QUETIAPINE [Suspect]
     Active Substance: QUETIAPINE
     Indication: Product used for unknown indication
     Route: 065
     Dates: start: 20230909, end: 20230909

REACTIONS (7)
  - Suicidal ideation [Recovering/Resolving]
  - Tachycardia [Recovering/Resolving]
  - Toxicity to various agents [Recovering/Resolving]
  - Intentional overdose [Recovering/Resolving]
  - Depressed level of consciousness [Recovering/Resolving]
  - Suicide attempt [Recovering/Resolving]
  - Sinus tachycardia [Recovering/Resolving]

NARRATIVE: CASE EVENT DATE: 20230909
